FAERS Safety Report 9657930 (Version 1)
Quarter: 2013Q4

REPORT INFORMATION
  Report Type: Spontaneous
  Country: IN (occurrence: IN)
  Receive Date: 20131030
  Receipt Date: 20131030
  Transmission Date: 20140711
  Serious: Yes (Other)
  Sender: FDA-Public Use
  Company Number: PHHY2013IN119974

PATIENT
  Age: 37 Year
  Sex: Male

DRUGS (2)
  1. CEFTRIAXONE [Suspect]
     Indication: HYDROCELE
  2. CEFTRIAXONE [Suspect]
     Indication: SCLEROTHERAPY

REACTIONS (7)
  - Autoimmune disorder [Unknown]
  - Agitation [Recovered/Resolved]
  - Pain [Recovered/Resolved]
  - Orchitis [Recovered/Resolved]
  - Neuromyotonia [Recovered/Resolved]
  - Hyperhidrosis [Recovered/Resolved]
  - Insomnia [Recovered/Resolved]
